FAERS Safety Report 17263265 (Version 1)
Quarter: 2020Q1

REPORT INFORMATION
  Report Type: Spontaneous
  Country: US (occurrence: US)
  Receive Date: 20200112
  Receipt Date: 20200112
  Transmission Date: 20200409
  Serious: No
  Sender: FDA-Public Use
  Company Number: None

PATIENT
  Age: 55 Year
  Sex: Female
  Weight: 69.75 kg

DRUGS (14)
  1. KEYTRUDA [Suspect]
     Active Substance: PEMBROLIZUMAB
     Indication: LUNG CARCINOMA CELL TYPE UNSPECIFIED STAGE IV
     Dosage: ?          QUANTITY:1 INFUSION;OTHER FREQUENCY:EVERY 3 WEEKS;?
     Route: 042
     Dates: start: 20171203
  2. ALIMTA [Concomitant]
     Active Substance: PEMETREXED DISODIUM
  3. SINGULAIR [Concomitant]
     Active Substance: MONTELUKAST SODIUM
  4. MAGNESIUM [Concomitant]
     Active Substance: MAGNESIUM
  5. AMBIEN [Concomitant]
     Active Substance: ZOLPIDEM TARTRATE
  6. PLAVIX [Concomitant]
     Active Substance: CLOPIDOGREL BISULFATE
  7. MECLIZINE [Concomitant]
     Active Substance: MECLIZINE HYDROCHLORIDE
  8. VITAMIN B12 [Concomitant]
     Active Substance: CYANOCOBALAMIN
  9. VITAMIN B COMPLEX [Concomitant]
     Active Substance: CYANOCOBALAMIN\DEXPANTHENOL\NIACINAMIDE\PYRIDOXINE HYDROCHLORIDE\RIBOFLAVIN 5^-PHOSPHATE SODIUM\THIAMINE HYDROCHLORIDE\VITAMIN B COMPLEX
  10. LASIX [Concomitant]
     Active Substance: FUROSEMIDE
  11. XANAX [Concomitant]
     Active Substance: ALPRAZOLAM
  12. VITAMIN C + ZINC [Concomitant]
  13. FOLIC ACID. [Concomitant]
     Active Substance: FOLIC ACID
  14. LIPITOR [Concomitant]
     Active Substance: ATORVASTATIN CALCIUM

REACTIONS (7)
  - Constipation [None]
  - Fatigue [None]
  - Dizziness [None]
  - Drug ineffective [None]
  - Vertigo [None]
  - Oedema [None]
  - Amnesia [None]

NARRATIVE: CASE EVENT DATE: 20180930
